FAERS Safety Report 4540971-6 (Version None)
Quarter: 2004Q4

REPORT INFORMATION
  Report Type: 
  Country: None (occurrence: None)
  Receive Date: 20041228
  Receipt Date: 20031027
  Transmission Date: 20050328
  Serious: Yes (Hospitalization)
  Sender: FDA-Public Use
  Company Number: 2003AP03814

PATIENT
  Age: 60 Year
  Sex: Female

DRUGS (5)
  1. IRESSA [Suspect]
     Indication: LUNG ADENOCARCINOMA
     Dosage: 250 MG DAILY PO
     Route: 048
  2. EBASTEL [Concomitant]
  3. ADVANTAN [Concomitant]
  4. UCERAX [Concomitant]
  5. PANCRELIPASE [Concomitant]

REACTIONS (3)
  - CARCINOMA [None]
  - HYDROPNEUMOTHORAX [None]
  - PAIN [None]
